FAERS Safety Report 5103495-3 (Version None)
Quarter: 2006Q3

REPORT INFORMATION
  Report Type: 
  Country: None (occurrence: None)
  Receive Date: 20060913
  Receipt Date: 20060906
  Transmission Date: 20061208
  Serious: Yes (Hospitalization)
  Sender: FDA-Public Use
  Company Number: US-JNJFOC-20050905599

PATIENT
  Sex: Female
  Weight: 58.97 kg

DRUGS (13)
  1. REMICADE [Suspect]
     Indication: DRUG USE FOR UNKNOWN INDICATION
     Route: 042
  2. PENTASA [Concomitant]
     Indication: COLITIS
     Route: 048
  3. PREDNISONE TAB [Concomitant]
     Route: 048
  4. PAXIL CR [Concomitant]
     Route: 048
  5. CIPRO [Concomitant]
     Dosage: END DATE:  DURING FIRST TRIMESTER; DURATION UNKNOWN
  6. PREVACID [Concomitant]
     Route: 048
     Dates: start: 20051001
  7. TYLENOL W/ CODEINE NO. 3 [Concomitant]
     Route: 048
  8. HYDROCODONE BITARTRATE [Concomitant]
  9. AMITRIPTYLINE HCL [Concomitant]
     Dates: end: 20050801
  10. FLEXERIL [Concomitant]
     Dates: end: 20050801
  11. PHERERGAN [Concomitant]
     Dates: end: 20051201
  12. ZOFRAN [Concomitant]
  13. PERIACTIN [Concomitant]

REACTIONS (4)
  - CAESAREAN SECTION [None]
  - DRUG EXPOSURE DURING PREGNANCY [None]
  - HYPEREMESIS GRAVIDARUM [None]
  - PREGNANCY [None]
